FAERS Safety Report 23468848 (Version 2)
Quarter: 2024Q2

REPORT INFORMATION
  Report Type: Spontaneous
  Country: JP (occurrence: JP)
  Receive Date: 20240202
  Receipt Date: 20240416
  Transmission Date: 20240716
  Serious: Yes (Death)
  Sender: FDA-Public Use
  Company Number: JP-CHUGAI-2024001966

PATIENT
  Age: 64 Year
  Sex: Female
  Weight: 43.3 kg

DRUGS (4)
  1. ACTEMRA [Suspect]
     Active Substance: TOCILIZUMAB
     Indication: Still^s disease
     Dosage: 8 MILLIGRAM/KILOGRAM, ONCE/2WEEKS
     Route: 042
     Dates: end: 20230831
  2. ACTEMRA [Suspect]
     Active Substance: TOCILIZUMAB
     Dosage: 320 MILLIGRAM
     Route: 042
     Dates: start: 20231021, end: 20231111
  3. PREDNISOLONE [Suspect]
     Active Substance: PREDNISOLONE
     Indication: Still^s disease
     Dosage: UNK
     Route: 065
  4. LOXOPROFEN SODIUM [Suspect]
     Active Substance: LOXOPROFEN SODIUM
     Indication: Still^s disease
     Dosage: UNK
     Route: 065

REACTIONS (3)
  - Gastrointestinal perforation [Fatal]
  - Cardiac failure [Fatal]
  - Still^s disease [Fatal]

NARRATIVE: CASE EVENT DATE: 20231119
